FAERS Safety Report 19655661 (Version 2)
Quarter: 2021Q3

REPORT INFORMATION
  Report Type: Spontaneous
  Country: CN (occurrence: CN)
  Receive Date: 20210804
  Receipt Date: 20210805
  Transmission Date: 20211014
  Serious: Yes (Other)
  Sender: FDA-Public Use
  Company Number: CN-PFIZER INC-202100944095

PATIENT
  Age: 26 Year
  Sex: Female

DRUGS (2)
  1. ZYVOX [Suspect]
     Active Substance: LINEZOLID
     Indication: BACTERAEMIA
     Dosage: 0.6 G, 2X/DAY (ABOUT 70ML WAS INFUSED THAT NIGHT)
     Route: 041
     Dates: start: 20210720, end: 20210720
  2. ZYVOX [Suspect]
     Active Substance: LINEZOLID
     Indication: ANTI-INFECTIVE THERAPY

REACTIONS (9)
  - Dyspnoea [Recovering/Resolving]
  - Blood pressure increased [Recovering/Resolving]
  - Abdominal discomfort [Recovering/Resolving]
  - Respiratory rate increased [Recovering/Resolving]
  - Hypersensitivity [Recovering/Resolving]
  - Pallor [Recovering/Resolving]
  - Depressed mood [Recovering/Resolving]
  - Heart rate increased [Recovering/Resolving]
  - Somnolence [Unknown]

NARRATIVE: CASE EVENT DATE: 20210720
